FAERS Safety Report 5095791-3 (Version None)
Quarter: 2006Q3

REPORT INFORMATION
  Report Type: 
  Country: None (occurrence: None)
  Receive Date: 20060905
  Receipt Date: 20060509
  Transmission Date: 20061208
  Serious: Yes (Hospitalization)
  Sender: FDA-Public Use
  Company Number: DE-BAYER-200610611BVD

PATIENT
  Age: 66 Year
  Sex: Female
  Weight: 82 kg

DRUGS (4)
  1. AVELOX [Suspect]
     Indication: BRONCHITIS ACUTE
     Dosage: TOTAL DAILY DOSE: 400 MG
     Route: 065
     Dates: start: 20060424, end: 20060429
  2. LOCOL [Concomitant]
     Route: 065
  3. LISINOPRIL [Concomitant]
     Route: 065
  4. METFORMIN HCL [Concomitant]
     Route: 065

REACTIONS (2)
  - PETECHIAE [None]
  - THROMBOCYTOPENIA [None]
